FAERS Safety Report 14687461 (Version 1)
Quarter: 2018Q1

REPORT INFORMATION
  Report Type: Spontaneous
  Country: US (occurrence: US)
  Receive Date: 20180328
  Receipt Date: 20180328
  Transmission Date: 20180509
  Serious: No
  Sender: FDA-Public Use
  Company Number: US-ELI_LILLY_AND_COMPANY-US201803009579

PATIENT
  Age: 61 Year
  Sex: Female

DRUGS (1)
  1. HUMALOG [Suspect]
     Active Substance: INSULIN LISPRO
     Indication: TYPE 2 DIABETES MELLITUS
     Dosage: 10 U, TID (BEFORE MEALS)
     Route: 058
     Dates: start: 20180220

REACTIONS (7)
  - Fatigue [Unknown]
  - Asthenia [Unknown]
  - Blood glucose increased [Not Recovered/Not Resolved]
  - Decreased appetite [Unknown]
  - Mood altered [Unknown]
  - Drug dose omission [Unknown]
  - Weight decreased [Unknown]

NARRATIVE: CASE EVENT DATE: 20180220
